FAERS Safety Report 9377219 (Version 7)
Quarter: 2013Q3

REPORT INFORMATION
  Report Type: Report from Study
  Country: US (occurrence: US)
  Receive Date: 20130701
  Receipt Date: 20130924
  Transmission Date: 20140515
  Serious: Yes (Other)
  Sender: FDA-Public Use
  Company Number: US-ASTELLAS-2013EU005588

PATIENT
  Age: 70 Year
  Sex: Male
  Weight: 102.3 kg

DRUGS (8)
  1. BLINDED ENZALUTAMIDE [Suspect]
     Dosage: UNK
     Route: 048
     Dates: start: 20130801, end: 20130812
  2. METOPROLOL [Concomitant]
     Indication: HYPERTENSION
     Dosage: 25 MG, UID/QD
     Route: 048
     Dates: start: 20090116
  3. SIMVASTATIN [Concomitant]
     Indication: HYPERLIPIDAEMIA
     Dosage: 40 MG, UID/QD
     Route: 048
     Dates: start: 20130315, end: 20130626
  4. LISINOPRIL [Concomitant]
     Indication: HYPERTENSION
     Dosage: 5 MG, UID/QD
     Route: 048
     Dates: start: 20130327
  5. OMEPRAZOLE MAGNESIUM [Concomitant]
     Indication: GASTROOESOPHAGEAL REFLUX DISEASE
     Dosage: 20 MG, BID
     Route: 048
     Dates: start: 20130606
  6. LEUPROLIDE [Concomitant]
     Indication: PROSTATE CANCER
     Dosage: 22.5 MG, CYCLIC
     Route: 030
     Dates: start: 20130322
  7. CORICIDIN                          /01142901/ [Concomitant]
     Dosage: UNK
     Route: 065
     Dates: end: 201306
  8. BLINDED ENZALUTAMIDE [Suspect]
     Indication: PROSTATE CANCER
     Dosage: UNK
     Route: 048
     Dates: start: 20130507, end: 20130613

REACTIONS (3)
  - Aspartate aminotransferase increased [Recovered/Resolved]
  - Alanine aminotransferase increased [Recovered/Resolved]
  - Overdose [Recovered/Resolved]
